FAERS Safety Report 7226533 (Version 2)
Quarter: 2012Q4

REPORT INFORMATION
  Report Type: 
  Country: US (occurrence: US)
  Receive Date: 20091222
  Receipt Date: 20120913
  Transmission Date: 20130627
  Serious: Yes (Hospitalization, Other)
  Sender: FDA-Public Use
  Company Number: US-ASTRAZENECA-2009SE23221

PATIENT
  Age: 61 Year
  Sex: Male
  Weight: 83.9 kg

DRUGS (22)
  1. CRESTOR [Suspect]
     Indication: BLOOD CHOLESTEROL INCREASED
     Route: 048
     Dates: start: 200901, end: 200903
  2. CRESTOR [Suspect]
     Indication: BLOOD CHOLESTEROL INCREASED
     Route: 048
     Dates: start: 200903, end: 200910
  3. CRESTOR [Suspect]
     Indication: BLOOD CHOLESTEROL INCREASED
     Route: 048
     Dates: end: 201208
  4. CRESTOR [Suspect]
     Indication: BLOOD CHOLESTEROL INCREASED
     Route: 048
  5. CRESTOR [Suspect]
     Indication: BLOOD CHOLESTEROL INCREASED
     Route: 048
  6. LISINOPRIL [Suspect]
     Route: 048
  7. BRILINTA [Suspect]
     Indication: STENT PLACEMENT
     Route: 048
     Dates: start: 201112, end: 201203
  8. BRILINTA [Suspect]
     Indication: ARTERIAL OCCLUSIVE DISEASE
     Route: 048
     Dates: start: 201112, end: 201203
  9. BRILINTA [Suspect]
     Indication: STENT PLACEMENT
     Route: 048
     Dates: start: 201203
  10. BRILINTA [Suspect]
     Indication: ARTERIAL OCCLUSIVE DISEASE
     Route: 048
     Dates: start: 201203
  11. PLAVIX [Suspect]
  12. CO Q-10 [Concomitant]
  13. FISH OIL [Concomitant]
     Dosage: 2 PILLS OR EQUIVALENT TO ONE GRAM
  14. CARNITENE [Concomitant]
  15. ASPIRIN [Concomitant]
     Route: 048
  16. ACIDFEX [Concomitant]
  17. BYSTOLIC [Concomitant]
     Indication: BLOOD PRESSURE
  18. VITAMIN D3 [Concomitant]
  19. VITAMIN B12 [Concomitant]
  20. VITAMIN B12 [Concomitant]
     Dosage: MONTH
     Route: 050
  21. RED WINE [Concomitant]
     Dosage: FOUR OUNCES
  22. OMEGA 3 [Concomitant]
     Dosage: 2 PILLS OR EQUIVALENT TO ONE GRAM

REACTIONS (18)
  - Chest pain [Unknown]
  - Enzyme level increased [Unknown]
  - Coronary artery occlusion [Unknown]
  - Burning sensation [Unknown]
  - Hyperchlorhydria [Unknown]
  - Dyspnoea [Recovered/Resolved]
  - Gastrooesophageal reflux disease [Unknown]
  - Weight increased [Unknown]
  - Chest pain [Unknown]
  - Myalgia [Unknown]
  - Hepatic enzyme increased [Unknown]
  - Nausea [Unknown]
  - Dizziness [Unknown]
  - Abdominal discomfort [Unknown]
  - Muscular weakness [Unknown]
  - Blood cholesterol increased [Unknown]
  - Urticaria [Unknown]
  - Intentional drug misuse [Unknown]
